FAERS Safety Report 23130458 (Version 1)
Quarter: 2023Q4

REPORT INFORMATION
  Report Type: Spontaneous
  Country: US (occurrence: None)
  Receive Date: 20231030
  Receipt Date: 20231030
  Transmission Date: 20240110
  Serious: Yes (Hospitalization, Other)
  Sender: FDA-Public Use
  Company Number: None

PATIENT
  Age: 29 Year
  Sex: Male

DRUGS (1)
  1. STERILE EYE DROPS [Suspect]
     Active Substance: DEXTRAN 70\POLYETHYLENE GLYCOL 400\POVIDONE\TETRAHYDROZOLINE HYDROCHLORIDE
     Dates: start: 20230928, end: 20231013

REACTIONS (3)
  - Halo vision [None]
  - Eye infection [None]
  - Photosensitivity reaction [None]

NARRATIVE: CASE EVENT DATE: 20231001
